FAERS Safety Report 8333398-2 (Version None)
Quarter: 2012Q2

REPORT INFORMATION
  Report Type: 
  Country: None (occurrence: None)
  Receive Date: 20120503
  Receipt Date: 20120427
  Transmission Date: 20120825
  Serious: No
  Sender: FDA-Public Use
  Company Number: US-BAYER-2012-041888

PATIENT
  Sex: Female

DRUGS (1)
  1. MIRENA [Suspect]
     Indication: CONTRACEPTION
     Dosage: 20 ?G/D, CONT
     Route: 015
     Dates: start: 20080101

REACTIONS (11)
  - BREAST TENDERNESS [None]
  - PELVIC PAIN [None]
  - FEELING ABNORMAL [None]
  - WEIGHT LOSS POOR [None]
  - ABDOMINAL DISCOMFORT [None]
  - EYE DISORDER [None]
  - LOSS OF LIBIDO [None]
  - ARTHRALGIA [None]
  - ANXIETY [None]
  - ABDOMINAL DISTENSION [None]
  - PHOTOPHOBIA [None]
